FAERS Safety Report 9748371 (Version 1)
Quarter: 2013Q4

REPORT INFORMATION
  Report Type: Spontaneous
  Country: US (occurrence: None)
  Receive Date: 20131206
  Receipt Date: 20131206
  Transmission Date: 20140711
  Serious: Yes (Hospitalization)
  Sender: FDA-Public Use
  Company Number: None

PATIENT
  Age: 48 Year
  Sex: Female
  Weight: 56.5 kg

DRUGS (7)
  1. BEVACIZUMAB [Suspect]
  2. CARBOPLATIN [Suspect]
  3. PACLITAXEL (TAXOL) [Suspect]
     Dosage: 250 MG
  4. CEFEPIME [Concomitant]
  5. LEVOFLOXACIN [Concomitant]
  6. MOXIFLOXACIN HCL [Concomitant]
  7. VANCOMYCIN [Concomitant]

REACTIONS (10)
  - Musculoskeletal chest pain [None]
  - White blood cell count decreased [None]
  - Hypoxia [None]
  - Tachycardia [None]
  - Somnolence [None]
  - Neutropenia [None]
  - Pneumonia aspiration [None]
  - Vomiting [None]
  - Staphylococcus test positive [None]
  - Lung infection [None]
